FAERS Safety Report 4594219-7 (Version None)
Quarter: 2005Q1

REPORT INFORMATION
  Report Type: 
  Country: None (occurrence: None)
  Receive Date: 20050301
  Receipt Date: 20040720
  Transmission Date: 20050727
  Serious: No
  Sender: FDA-Public Use
  Company Number: US-GLAXOSMITHKLINE-A0519056A

PATIENT
  Age: 13 Year
  Sex: Female

DRUGS (1)
  1. VALTREX [Suspect]
     Indication: HERPES OPHTHALMIC
     Dosage: 500MG TWICE PER DAY
     Route: 048
     Dates: start: 20040712, end: 20040715

REACTIONS (3)
  - DRUG INEFFECTIVE [None]
  - EYE PAIN [None]
  - EYE SWELLING [None]
